FAERS Safety Report 22209209 (Version 1)
Quarter: 2023Q2

REPORT INFORMATION
  Report Type: Report from Study
  Country: CH (occurrence: CH)
  Receive Date: 20230413
  Receipt Date: 20230413
  Transmission Date: 20230722
  Serious: Yes (Hospitalization, Other)
  Sender: FDA-Public Use
  Company Number: CH-INCYTE CORPORATION-2022IN011672

PATIENT

DRUGS (1)
  1. RETIFANLIMAB [Suspect]
     Active Substance: RETIFANLIMAB
     Indication: Neuroendocrine carcinoma of the skin
     Dosage: 500 MILLIGRAM
     Route: 042
     Dates: start: 20220414

REACTIONS (1)
  - Immune-mediated hepatitis [Recovered/Resolved]

NARRATIVE: CASE EVENT DATE: 20221118
